FAERS Safety Report 25924474 (Version 1)
Quarter: 2025Q4

REPORT INFORMATION
  Report Type: Spontaneous
  Country: US (occurrence: None)
  Receive Date: 20251012
  Receipt Date: 20251012
  Transmission Date: 20260118
  Serious: Yes (Hospitalization)
  Sender: FDA-CTU
  Company Number: None

PATIENT
  Age: 20 Year
  Sex: Female
  Weight: 58.5 kg

DRUGS (1)
  1. DUPIXENT [Suspect]
     Active Substance: DUPILUMAB
     Dates: end: 20250805

REACTIONS (4)
  - Vomiting [None]
  - Dyspepsia [None]
  - Nausea [None]
  - Injection related reaction [None]

NARRATIVE: CASE EVENT DATE: 20250705
